FAERS Safety Report 5255053-8 (Version None)
Quarter: 2007Q1

REPORT INFORMATION
  Report Type: 
  Country: None (occurrence: None)
  Receive Date: 20070305
  Receipt Date: 20070227
  Transmission Date: 20070707
  Serious: Yes (Death, Hospitalization, Other)
  Sender: FDA-Public Use
  Company Number: ES-BRISTOL-MYERS SQUIBB COMPANY-13658356

PATIENT
  Age: 48 Year
  Sex: Male
  Weight: 79 kg

DRUGS (3)
  1. SUSTIVA [Suspect]
     Indication: HIV INFECTION
     Dates: start: 20061128
  2. VIDEX [Suspect]
     Indication: HIV INFECTION
     Dates: start: 20061128
  3. EMTRIVA [Suspect]

REACTIONS (5)
  - ARRHYTHMIA [None]
  - ASTHENIA [None]
  - HYPOKALAEMIA [None]
  - HYPONATRAEMIA [None]
  - METABOLIC DISORDER [None]
